FAERS Safety Report 4349877-9 (Version None)
Quarter: 2004Q2

REPORT INFORMATION
  Report Type: 
  Country: None (occurrence: None)
  Receive Date: 20040428
  Receipt Date: 20040428
  Transmission Date: 20050107
  Serious: Yes (Other)
  Sender: FDA-Public Use
  Company Number: None

PATIENT
  Age: 36 Year
  Sex: Female

DRUGS (4)
  1. BUPROPION HCL [Suspect]
     Indication: DISEASE RECURRENCE
     Dosage: TWO Q AM PO + ONE Q PM PO
     Route: 048
     Dates: start: 20040330, end: 20040414
  2. BUPROPION HCL [Suspect]
     Indication: MAJOR DEPRESSION
     Dosage: TWO Q AM PO + ONE Q PM PO
     Route: 048
     Dates: start: 20040330, end: 20040414
  3. FLUOXETINE [Concomitant]
  4. WELLBUTRIN SR [Concomitant]

REACTIONS (6)
  - ANXIETY [None]
  - HYPERHIDROSIS [None]
  - INSOMNIA [None]
  - PALPITATIONS [None]
  - PHARMACEUTICAL PRODUCT COMPLAINT [None]
  - TRISMUS [None]
